FAERS Safety Report 4849986-1 (Version None)
Quarter: 2005Q4

REPORT INFORMATION
  Report Type: 
  Country: None (occurrence: None)
  Receive Date: 20051123
  Receipt Date: 20050126
  Transmission Date: 20060501
  Serious: Yes (Other)
  Sender: FDA-Public Use
  Company Number: 2005020005

PATIENT
  Age: 65 Year
  Sex: Female

DRUGS (5)
  1. LIPITOR [Suspect]
     Indication: ILL-DEFINED DISORDER
     Dosage: 20 MG (1 IN 1 D),ORAL
     Route: 048
     Dates: start: 19950101, end: 20040501
  2. LEVOTHYROXINE SODIUM [Concomitant]
  3. METOPROLOL SUCCINATE [Concomitant]
  4. ROSIGLITAZONE MALEATE [Concomitant]
  5. METFORMIN HCL [Concomitant]

REACTIONS (4)
  - ASTHENIA [None]
  - BACK PAIN [None]
  - BLOOD CREATINE PHOSPHOKINASE INCREASED [None]
  - DRUG INEFFECTIVE [None]
